FAERS Safety Report 5035120-4 (Version None)
Quarter: 2006Q2

REPORT INFORMATION
  Report Type: 
  Country: None (occurrence: None)
  Receive Date: 20060627
  Receipt Date: 20060616
  Transmission Date: 20061013
  Serious: Yes (Other)
  Sender: FDA-Public Use
  Company Number: PHBS2006SE08970

PATIENT
  Age: 71 Year
  Sex: Male

DRUGS (5)
  1. ZOMETA [Suspect]
     Indication: LYMPHOMA
     Route: 042
     Dates: start: 20030509, end: 20050914
  2. OXYCONTIN [Concomitant]
     Route: 065
  3. DELTISON [Concomitant]
     Route: 065
  4. ALKERAN [Concomitant]
     Route: 065
  5. ALLOPURINOL [Concomitant]
     Route: 065

REACTIONS (1)
  - OSTEONECROSIS [None]
